FAERS Safety Report 6419127-8 (Version None)
Quarter: 2009Q4

REPORT INFORMATION
  Report Type: 
  Country: None (occurrence: None)
  Receive Date: 20091029
  Receipt Date: 20091021
  Transmission Date: 20100525
  Serious: No
  Sender: FDA-Public Use
  Company Number: FR-ASTRAZENECA-2009SE16709

PATIENT
  Age: 38 Year
  Sex: Male

DRUGS (1)
  1. ZOMIGORO [Suspect]
     Indication: MIGRAINE
     Route: 048
     Dates: start: 20080101, end: 20090101

REACTIONS (1)
  - MUSCLE RUPTURE [None]
